FAERS Safety Report 8044520-X (Version None)
Quarter: 2012Q1

REPORT INFORMATION
  Report Type: 
  Country: None (occurrence: None)
  Receive Date: 20120113
  Receipt Date: 20111025
  Transmission Date: 20120608
  Serious: No
  Sender: FDA-Public Use
  Company Number: US-TEVA-306639USA

PATIENT
  Sex: Female

DRUGS (10)
  1. ATORVASTATIN CALCIUM [Concomitant]
     Indication: BLOOD CHOLESTEROL INCREASED
  2. ACETYLSALICYLIC ACID SRT [Concomitant]
     Indication: CARDIAC DISORDER
  3. DILTIAZEM HCL [Concomitant]
     Indication: HYPERTENSION
  4. BECLOMETHASONE DIPROPIONATE [Concomitant]
     Indication: ASTHMA
  5. TRIAMCINOLONE [Suspect]
     Indication: HYPERSENSITIVITY
     Dosage: 4 DOSAGE FORMS;
     Dates: start: 20111025
  6. LEVOTHYROXINE SODIUM [Concomitant]
     Indication: HYPOTHYROIDISM
  7. ACETAMINOPHEN [Concomitant]
     Indication: PAIN
  8. CLOBETASOL [Concomitant]
     Indication: RASH
  9. POTASSIUM CHLORIDE [Concomitant]
     Indication: HYPONATRAEMIA
  10. LORAZEPAM [Concomitant]
     Indication: SLEEP DISORDER

REACTIONS (1)
  - BURNING SENSATION [None]
